FAERS Safety Report 6874030-4 (Version None)
Quarter: 2010Q4

REPORT INFORMATION
  Report Type: 
  Country: None (occurrence: None)
  Receive Date: 20100723
  Receipt Date: 20100715
  Transmission Date: 20110411
  Serious: Yes (Other)
  Sender: FDA-Public Use
  Company Number: 2010SP039511

PATIENT
  Sex: Female

DRUGS (1)
  1. IMPLANON [Suspect]
     Indication: CONTRACEPTION
     Dosage: 68 MG; SBDE
     Route: 059

REACTIONS (6)
  - AGGRESSION [None]
  - DEPRESSION [None]
  - DYSFUNCTIONAL UTERINE BLEEDING [None]
  - FAMILY STRESS [None]
  - MOOD ALTERED [None]
  - TREATMENT FAILURE [None]
